FAERS Safety Report 7920593-7 (Version None)
Quarter: 2011Q4

REPORT INFORMATION
  Report Type: 
  Country: None (occurrence: None)
  Receive Date: 20111117
  Receipt Date: 20111115
  Transmission Date: 20120403
  Serious: Yes (Death)
  Sender: FDA-Public Use
  Company Number: PHHY2010CA89904

PATIENT
  Sex: Male

DRUGS (4)
  1. VITAMIN D [Concomitant]
  2. COUMADIN [Concomitant]
  3. CALCIUM [Concomitant]
  4. ZOLEDRONOC ACID [Suspect]
     Indication: OSTEOPOROSIS
     Dosage: 5 MG, UNK
     Route: 042
     Dates: start: 20101227

REACTIONS (2)
  - DEATH [None]
  - DIZZINESS [None]
